FAERS Safety Report 19606466 (Version 2)
Quarter: 2022Q2

REPORT INFORMATION
  Report Type: Spontaneous
  Country: AR (occurrence: AR)
  Receive Date: 20210725
  Receipt Date: 20220410
  Transmission Date: 20220720
  Serious: Yes (Other)
  Sender: FDA-Public Use
  Company Number: AR-PFIZER INC-2021887100

PATIENT
  Age: 52 Year
  Sex: Female

DRUGS (2)
  1. ENBREL [Suspect]
     Active Substance: ETANERCEPT
     Indication: Rheumatoid arthritis
     Dosage: 50 MG, EVERY 10 DAYS
     Route: 065
     Dates: start: 20111222
  2. ENBREL [Suspect]
     Active Substance: ETANERCEPT
     Dosage: 50 MG, EVERY 15 DAYS (SOMETIMES SHE WAS STRETCHING IT FOR 20 MORE DAYS)
     Route: 065

REACTIONS (9)
  - Rheumatoid arthritis [Recovered/Resolved]
  - Off label use [Unknown]
  - Liver disorder [Recovered/Resolved]
  - Gait inability [Recovered/Resolved]
  - Muscular weakness [Recovered/Resolved]
  - Conjunctivitis [Recovered/Resolved]
  - Intentional product misuse [Not Recovered/Not Resolved]
  - Pain [Recovered/Resolved]
  - Sinusitis [Recovered/Resolved]

NARRATIVE: CASE EVENT DATE: 20111222
